FAERS Safety Report 7766014-9 (Version None)
Quarter: 2011Q3

REPORT INFORMATION
  Report Type: 
  Country: None (occurrence: None)
  Receive Date: 20110921
  Receipt Date: 20110913
  Transmission Date: 20111222
  Serious: Yes (Hospitalization, Other)
  Sender: FDA-Public Use
  Company Number: JP-CEPHALON-2011004991

PATIENT
  Age: 76 Year
  Sex: Male

DRUGS (2)
  1. RITUXIMAB [Concomitant]
  2. TREANDA [Suspect]
     Indication: MANTLE CELL LYMPHOMA
     Route: 042
     Dates: start: 20110714, end: 20110715

REACTIONS (5)
  - DIARRHOEA [None]
  - BACTERAEMIA [None]
  - BLOOD PRESSURE DECREASED [None]
  - PYREXIA [None]
  - NEUTROPHIL COUNT DECREASED [None]
